FAERS Safety Report 4571101-2 (Version None)
Quarter: 2005Q1

REPORT INFORMATION
  Report Type: 
  Country: None (occurrence: None)
  Receive Date: 20050202
  Receipt Date: 20050121
  Transmission Date: 20050727
  Serious: Yes (Hospitalization)
  Sender: FDA-Public Use
  Company Number: 2005-01-1610

PATIENT
  Age: 30 Year
  Sex: Male

DRUGS (2)
  1. CLARINASE  (LORATADINE/PSEUDOEPHEDRINE) [Suspect]
     Dosage: 1 TABLET ORAL; 1 DOSE(S)
     Route: 048
  2. ANTIBIOTIC [Concomitant]

REACTIONS (1)
  - SUPRAVENTRICULAR TACHYCARDIA [None]
